FAERS Safety Report 7051841-6 (Version None)
Quarter: 2010Q4

REPORT INFORMATION
  Report Type: 
  Country: None (occurrence: None)
  Receive Date: 20101019
  Receipt Date: 20100919
  Transmission Date: 20110411
  Serious: Yes (Disabling)
  Sender: FDA-Public Use
  Company Number: US-BAYER-201020279BCC

PATIENT
  Sex: Female

DRUGS (1)
  1. MIDOL COMPLETE CAPLETS [Suspect]
     Indication: DYSMENORRHOEA
     Dosage: TOTAL DAILY DOSE: 4 DF
     Route: 048
     Dates: start: 20100918

REACTIONS (6)
  - ABASIA [None]
  - DIZZINESS [None]
  - FATIGUE [None]
  - FEELING HOT [None]
  - NAUSEA [None]
  - NERVOUSNESS [None]
